APPROVED DRUG PRODUCT: GEMFIBROZIL
Active Ingredient: GEMFIBROZIL
Strength: 600MG
Dosage Form/Route: TABLET;ORAL
Application: A075034 | Product #001
Applicant: APOTEX INC
Approved: Jul 20, 1998 | RLD: No | RS: No | Type: DISCN